FAERS Safety Report 6383442-7 (Version None)
Quarter: 2009Q3

REPORT INFORMATION
  Report Type: 
  Country: None (occurrence: None)
  Receive Date: 20090929
  Receipt Date: 20090929
  Transmission Date: 20100115
  Serious: Yes (Hospitalization)
  Sender: FDA-Public Use
  Company Number: None

PATIENT
  Sex: Male
  Weight: 74 kg

DRUGS (4)
  1. FLUOROURACIL [Suspect]
     Dosage: 10808 MG
     Dates: end: 20090903
  2. BEVACIZUMAB (RHUMAB VEGF) [Suspect]
     Dosage: 375 MG
     Dates: end: 20090901
  3. LEUCOVORIN CALCIUM [Suspect]
     Dosage: 1544 MG
     Dates: end: 20090901
  4. ELOXATIN [Suspect]
     Dosage: 328 MG
     Dates: end: 20090901

REACTIONS (8)
  - DEHYDRATION [None]
  - DIARRHOEA [None]
  - DRUG TOXICITY [None]
  - HYPOKALAEMIA [None]
  - INTERNATIONAL NORMALISED RATIO INCREASED [None]
  - NAUSEA [None]
  - PROTHROMBIN TIME PROLONGED [None]
  - VOMITING [None]
